FAERS Safety Report 24689836 (Version 2)
Quarter: 2024Q4

REPORT INFORMATION
  Report Type: Spontaneous
  Country: US (occurrence: US)
  Receive Date: 20241203
  Receipt Date: 20241206
  Transmission Date: 20250115
  Serious: Yes (Hospitalization)
  Sender: STRIDES
  Company Number: None

PATIENT

DRUGS (4)
  1. FLUOXETINE [Interacting]
     Active Substance: FLUOXETINE HYDROCHLORIDE
     Indication: Obsessive-compulsive disorder
     Dosage: 10 MILLIGRAM, QD (QAM)
     Route: 048
     Dates: start: 202001, end: 2020
  2. ATOMOXETINE [Interacting]
     Active Substance: ATOMOXETINE HYDROCHLORIDE
     Indication: Attention deficit hyperactivity disorder
     Dosage: 10 MILLIGRAM, QD, QAM
     Route: 048
     Dates: start: 201912, end: 202001
  3. ATOMOXETINE [Interacting]
     Active Substance: ATOMOXETINE HYDROCHLORIDE
     Dosage: 25 MILLIGRAM, QD (INCREASED TO 25 MG PO QAM FOR 4 WEEKS)
     Route: 048
     Dates: start: 202001, end: 202002
  4. ATOMOXETINE [Interacting]
     Active Substance: ATOMOXETINE HYDROCHLORIDE
     Dosage: 40 MILLIGRAM, QD (BUILT UP TO 40 MG PO QAM)
     Route: 048
     Dates: start: 202002, end: 2020

REACTIONS (8)
  - Attention deficit hyperactivity disorder [Recovered/Resolved]
  - Obsessive-compulsive symptom [Recovered/Resolved]
  - Condition aggravated [Recovered/Resolved]
  - Agitation [Recovered/Resolved]
  - Anxiety [Recovered/Resolved]
  - Aggression [Recovered/Resolved]
  - Suicidal ideation [Recovered/Resolved]
  - Drug interaction [Recovered/Resolved]

NARRATIVE: CASE EVENT DATE: 20200101
